FAERS Safety Report 14713995 (Version 1)
Quarter: 2018Q2

REPORT INFORMATION
  Report Type: Report from Study
  Country: DE (occurrence: DE)
  Receive Date: 20180404
  Receipt Date: 20180404
  Transmission Date: 20180711
  Serious: Yes (Other)
  Sender: FDA-Public Use
  Company Number: DE-TEVA-2018-DE-875565

PATIENT
  Age: 56 Year
  Sex: Female

DRUGS (2)
  1. COPAXONE [Suspect]
     Active Substance: GLATIRAMER ACETATE
     Dates: start: 20180201
  2. COPAXONE [Suspect]
     Active Substance: GLATIRAMER ACETATE
     Indication: MULTIPLE SCLEROSIS
     Dates: start: 20170205, end: 20171031

REACTIONS (2)
  - Lipoedema [Not Recovered/Not Resolved]
  - Limb girth increased [Not Recovered/Not Resolved]

NARRATIVE: CASE EVENT DATE: 201702
